FAERS Safety Report 8264308-4 (Version None)
Quarter: 2012Q2

REPORT INFORMATION
  Report Type: 
  Country: None (occurrence: None)
  Receive Date: 20120406
  Receipt Date: 20120326
  Transmission Date: 20120825
  Serious: Yes (Death, Other)
  Sender: FDA-Public Use
  Company Number: RS-JNJFOC-20120304583

PATIENT
  Sex: Female
  Weight: 51.6 kg

DRUGS (7)
  1. MESALAMINE [Concomitant]
     Route: 061
  2. REMICADE [Suspect]
     Indication: INFLAMMATORY BOWEL DISEASE
     Dosage: 0, 2, 6 AND THEN EVERY 8 WEEKS DURING 12+/- 4 MONTH.
     Route: 042
     Dates: start: 20100401
  3. CORTICOSTEROIDS [Concomitant]
     Route: 042
  4. MESALAMINE [Concomitant]
     Route: 048
  5. HEPARIN [Concomitant]
     Route: 065
  6. VANCOMYCIN [Concomitant]
     Route: 065
  7. METRONIDAZOLE [Concomitant]
     Route: 065

REACTIONS (2)
  - EMBOLISM [None]
  - COR PULMONALE ACUTE [None]
